FAERS Safety Report 16398591 (Version 3)
Quarter: 2019Q3

REPORT INFORMATION
  Report Type: Report from Study
  Country: GB (occurrence: GB)
  Receive Date: 20190606
  Receipt Date: 20190822
  Transmission Date: 20191004
  Serious: Yes (Hospitalization)
  Sender: FDA-Public Use
  Company Number: GB-PFIZER INC-2019235891

PATIENT
  Age: 78 Year
  Sex: Male
  Weight: 110 kg

DRUGS (10)
  1. RANITIDINE. [Concomitant]
     Active Substance: RANITIDINE
     Dosage: UNK
     Dates: start: 20190417
  2. GEMCITABINE HYDROCHLORIDE. [Suspect]
     Active Substance: GEMCITABINE HYDROCHLORIDE
     Indication: ANAL CANCER
     Dosage: 250 MG/M2, QD ON DAY 1,8 AND 15 OF EACH 28 DAY CYCLE
     Route: 042
     Dates: start: 20190514, end: 20190514
  3. SRA737 [Suspect]
     Active Substance: INVESTIGATIONAL PRODUCT
     Dosage: 500 MG, QD ON 2, 3, 9, 10, 16 AND 17 OF EACH 28 DAY CYCLE
     Route: 048
     Dates: start: 20190515, end: 20190515
  4. ASPIRIN (E.C.) [Concomitant]
     Active Substance: ASPIRIN
     Dosage: UNK
     Dates: start: 2011
  5. ATORVASTATIN [Concomitant]
     Active Substance: ATORVASTATIN
     Dosage: UNK
     Dates: start: 2014
  6. SRA737 [Suspect]
     Active Substance: INVESTIGATIONAL PRODUCT
     Indication: ANAL CANCER
     Dosage: 500 MG, SINGLE DOSE ON DAY -7
     Route: 048
     Dates: start: 20190507, end: 20190507
  7. FELODIPINE. [Concomitant]
     Active Substance: FELODIPINE
     Dosage: UNK
     Dates: start: 2014
  8. SITAGLIPTIN [Concomitant]
     Active Substance: SITAGLIPTIN
     Dosage: UNK
     Dates: start: 2017
  9. OMEPRAZOLE. [Concomitant]
     Active Substance: OMEPRAZOLE
     Dosage: UNK
     Dates: start: 2008, end: 20190417
  10. METFORMIN [Concomitant]
     Active Substance: METFORMIN HYDROCHLORIDE
     Dosage: UNK
     Dates: start: 2017

REACTIONS (1)
  - Lower respiratory tract infection [Recovered/Resolved]

NARRATIVE: CASE EVENT DATE: 20190515
